FAERS Safety Report 19500472 (Version 6)
Quarter: 2024Q4

REPORT INFORMATION
  Report Type: Spontaneous
  Country: AT (occurrence: AT)
  Receive Date: 20210706
  Receipt Date: 20241003
  Transmission Date: 20250115
  Serious: Yes (Other)
  Sender: AMGEN
  Company Number: AT-CELLTRION HEALTHCARE HUNGARY KFT-2020AT022577

PATIENT
  Age: 49 Year
  Sex: Female
  Weight: 55 kg

DRUGS (34)
  1. XGEVA [Suspect]
     Active Substance: DENOSUMAB
     Indication: Metastases to bone
     Dosage: 120 MG, QMO
     Route: 058
     Dates: start: 20190104
  2. XGEVA [Suspect]
     Active Substance: DENOSUMAB
     Indication: HER2 positive breast cancer
  3. EXEMESTANE [Suspect]
     Active Substance: EXEMESTANE
     Indication: Breast cancer
     Dosage: 25 MILLIGRAM, QD
     Route: 048
     Dates: start: 20181108
  4. EXEMESTANE [Suspect]
     Active Substance: EXEMESTANE
     Indication: HER2 positive breast cancer
  5. PACLITAXEL [Suspect]
     Active Substance: PACLITAXEL
     Indication: Breast cancer
     Dosage: 199 MILLIGRAM, QWK (MOST RECENT DOSE WAS RECEIVED ON 15/MAY/2019)
     Route: 042
     Dates: start: 20181205, end: 20190515
  6. TRASTUZUMAB [Suspect]
     Active Substance: TRASTUZUMAB
     Indication: Breast cancer
     Dosage: 330 MILLIGRAM, Q3WK (MOST RECENT DOSE PRIOR TO THE EVENT: 13/NOV/2018); SHE RECEIVED THE MOST RECENT
     Route: 042
     Dates: start: 20181113, end: 20190918
  7. TRASTUZUMAB [Suspect]
     Active Substance: TRASTUZUMAB
     Indication: HER2 positive breast cancer
     Dosage: 330 MILLIGRAM, Q4WK (MOST RECENT DOSE PRIOR TO THE EVENT: 13/NOV/2018)
     Route: 042
     Dates: start: 20190918
  8. PACLITAXEL [Suspect]
     Active Substance: PACLITAXEL
     Indication: HER2 positive breast cancer
     Dosage: 199 MILLIGRAM, QWK (MOST RECENT DOSE WAS RECEIVED ON 15/MAY/2019)
     Route: 042
     Dates: start: 20181215, end: 20190515
  9. PACLITAXEL [Suspect]
     Active Substance: PACLITAXEL
     Indication: HER2 positive breast cancer
     Dosage: 199 MILLIGRAM, QWK
     Route: 042
     Dates: start: 20181205, end: 20190515
  10. PERTUZUMAB [Suspect]
     Active Substance: PERTUZUMAB
     Indication: Breast cancer
     Dosage: 420 MILLIGRAM, Q4WK (MOST RECENT DOSE PRIOR TO THE EVENT: 13/NOV/2018)
     Route: 042
     Dates: start: 20190918, end: 20210406
  11. PERTUZUMAB [Suspect]
     Active Substance: PERTUZUMAB
     Indication: HER2 positive breast cancer
     Dosage: 420 MILLIGRAM, Q3WK (MOST RECENT DOSE PRIOR TO THE EVENT: 13/NOV/2018)
     Route: 042
     Dates: start: 20181113, end: 20190918
  12. PERTUZUMAB [Suspect]
     Active Substance: PERTUZUMAB
     Dosage: 420 MILLIGRAM, Q3WK (MOST RECENT DOSE PRIOR TO THE EVENT: 18/SEP/2019)
     Route: 042
     Dates: start: 20181113
  13. HERCEPTIN [Suspect]
     Active Substance: TRASTUZUMAB
     Indication: HER2 positive breast cancer
     Dosage: 330 MILLIGRAM, Q3WK
     Route: 040
     Dates: start: 20181113, end: 20190918
  14. HERCEPTIN [Suspect]
     Active Substance: TRASTUZUMAB
     Indication: Breast cancer
     Dosage: 330 MILLIGRAM, Q4WK
     Route: 040
     Dates: start: 20190918
  15. PERJETA [Suspect]
     Active Substance: PERTUZUMAB
     Indication: HER2 positive breast cancer
     Dosage: 420 MILLIGRAM, Q3WK; MOST RECENT DOSE PRIOR TO THE EVENT: 18/SEP/2019
     Route: 040
     Dates: start: 20181113, end: 20190918
  16. PERJETA [Suspect]
     Active Substance: PERTUZUMAB
     Dosage: 420 MILLIGRAM, Q4WK; MOST RECENT DOSE PRIOR TO THE EVENT: 13/NOV/2018
     Route: 040
     Dates: start: 20190918, end: 20210406
  17. ABRAXANE [Suspect]
     Active Substance: PACLITAXEL
     Indication: HER2 positive breast cancer
     Dosage: 199 MILLIGRAM, QWK
     Route: 042
     Dates: start: 20181205, end: 20190515
  18. AROMASIN [Suspect]
     Active Substance: EXEMESTANE
     Indication: HER2 positive breast cancer
     Dosage: 25 MILLIGRAM, QD
     Route: 048
     Dates: start: 20181108
  19. Oleovit [Concomitant]
     Dosage: UNK
     Route: 065
     Dates: start: 20181108
  20. DIAZEPAM [Concomitant]
     Active Substance: DIAZEPAM
     Dosage: 30 GTT DROPS (DROP (1/12 MILLILITRE))
     Route: 048
     Dates: start: 20181108
  21. PANTOPRAZOLE [Concomitant]
     Active Substance: PANTOPRAZOLE
     Dosage: 40 MILLIGRAM, QD
     Route: 048
     Dates: start: 20181108
  22. PREGABALIN [Concomitant]
     Active Substance: PREGABALIN
     Dosage: 75 MILLIGRAM, QD
     Route: 048
     Dates: start: 20210104
  23. PREGABALIN [Concomitant]
     Active Substance: PREGABALIN
     Dosage: 75 MILLIGRAM, QD
     Route: 048
     Dates: start: 20191004
  24. SUCRALAN [Concomitant]
     Indication: Stomatitis
     Dosage: 5 MILLILITER, Q12H
     Dates: start: 20181219, end: 20190104
  25. SUCRALAN [Concomitant]
     Dosage: 10 MILLILITER, Q12H
     Route: 048
     Dates: start: 20181219, end: 20190104
  26. MYCOSTATIN [Concomitant]
     Active Substance: NYSTATIN
     Indication: Stomatitis
     Dosage: 5 MILLILITER
     Route: 061
     Dates: start: 20181219, end: 20190104
  27. Paspertin [Concomitant]
  28. DEXAMETHASONE [Concomitant]
     Active Substance: DEXAMETHASONE
  29. APREPITANT [Concomitant]
     Active Substance: APREPITANT
  30. LEVOTHYROXINE SODIUM [Concomitant]
     Active Substance: LEVOTHYROXINE SODIUM
  31. Novalgin [Concomitant]
  32. ENOXAPARIN SODIUM [Concomitant]
     Active Substance: ENOXAPARIN SODIUM
  33. ONDANSETRON [Concomitant]
     Active Substance: ONDANSETRON
  34. MAGNESIUM [Concomitant]
     Active Substance: MAGNESIUM

REACTIONS (3)
  - Polyneuropathy [Recovered/Resolved]
  - Arthralgia [Recovered/Resolved]
  - Stomatitis [Recovered/Resolved]

NARRATIVE: CASE EVENT DATE: 20181207
